FAERS Safety Report 9473663 (Version 1)
Quarter: 2013Q3

REPORT INFORMATION
  Report Type: Spontaneous
  Country: US (occurrence: US)
  Receive Date: 20130823
  Receipt Date: 20130823
  Transmission Date: 20140515
  Serious: No
  Sender: FDA-Public Use
  Company Number: US-009507513-1308USA010659

PATIENT
  Age: 6 Year
  Sex: Female

DRUGS (2)
  1. MIRALAX [Suspect]
     Indication: PRODUCT USED FOR UNKNOWN INDICATION
     Dosage: UNK, UNKNOWN
     Route: 048
     Dates: start: 2013
  2. MIRALAX [Suspect]
     Indication: MEDICAL OBSERVATION

REACTIONS (7)
  - Mood swings [Unknown]
  - Psychomotor hyperactivity [Unknown]
  - Blood electrolytes decreased [Unknown]
  - Vomiting [Unknown]
  - Decreased appetite [Unknown]
  - Drug administered to patient of inappropriate age [Unknown]
  - Off label use [Unknown]
